FAERS Safety Report 5098374-4 (Version None)
Quarter: 2006Q3

REPORT INFORMATION
  Report Type: 
  Country: None (occurrence: None)
  Receive Date: 20060906
  Receipt Date: 20060807
  Transmission Date: 20061208
  Serious: Yes (Hospitalization)
  Sender: FDA-Public Use
  Company Number: AR-ABBOTT-06P-007-0339929-00

PATIENT
  Age: 32 Year
  Sex: Male
  Weight: 62 kg

DRUGS (2)
  1. KALETRA [Suspect]
     Indication: HIV TEST POSITIVE
     Dosage: 399.9/99.9MG
     Route: 048
     Dates: start: 20030101
  2. LAMIVUDINE [Concomitant]
     Indication: HIV TEST POSITIVE
     Route: 048
     Dates: start: 20030101

REACTIONS (3)
  - DIARRHOEA [None]
  - HYPOKALAEMIA [None]
  - VOMITING [None]
